FAERS Safety Report 12685106 (Version 1)
Quarter: 2016Q3

REPORT INFORMATION
  Report Type: Report from Study
  Country: CA (occurrence: CA)
  Receive Date: 20160825
  Receipt Date: 20160825
  Transmission Date: 20161109
  Serious: Yes (Other)
  Sender: FDA-Public Use
  Company Number: CA-JNJFOC-20160816877

PATIENT
  Sex: Female
  Weight: 55.5 kg

DRUGS (1)
  1. REMICADE [Suspect]
     Active Substance: INFLIXIMAB
     Indication: CROHN^S DISEASE
     Dosage: 5MG/KG
     Route: 042
     Dates: start: 20150812

REACTIONS (3)
  - Product use issue [Unknown]
  - Pharyngitis streptococcal [Unknown]
  - Off label use [Unknown]
